FAERS Safety Report 20502629 (Version 1)
Quarter: 2022Q1

REPORT INFORMATION
  Report Type: Spontaneous
  Country: US (occurrence: None)
  Receive Date: 20220221
  Receipt Date: 20220221
  Transmission Date: 20220423
  Serious: No
  Sender: FDA-Public Use
  Company Number: None

PATIENT
  Age: 50 Year
  Sex: Female

DRUGS (1)
  1. BENLYSTA [Suspect]
     Active Substance: BELIMUMAB
     Dosage: FREQUENCY : WEEKLY;?
     Route: 058
     Dates: start: 202112

REACTIONS (2)
  - Rash erythematous [None]
  - Rash pruritic [None]

NARRATIVE: CASE EVENT DATE: 20220217
